FAERS Safety Report 12237265 (Version 1)
Quarter: 2016Q2

REPORT INFORMATION
  Report Type: Spontaneous
  Country: US (occurrence: None)
  Receive Date: 20160404
  Receipt Date: 20160404
  Transmission Date: 20160815
  Serious: No
  Sender: FDA-Public Use
  Company Number: None

PATIENT
  Age: 50 Year
  Sex: Male
  Weight: 92.99 kg

DRUGS (2)
  1. MULTI VITAMIN [Concomitant]
     Active Substance: VITAMINS
  2. GEODON [Suspect]
     Active Substance: ZIPRASIDONE HYDROCHLORIDE\ZIPRASIDONE MESYLATE
     Indication: MENTAL DISORDER
     Dosage: ONE AT NIGHT
     Route: 048
     Dates: start: 20160305, end: 20160321

REACTIONS (8)
  - Dry mouth [None]
  - Abdominal pain [None]
  - Dry throat [None]
  - Cough [None]
  - Dysphagia [None]
  - Eosinophilia [None]
  - Vision blurred [None]
  - Somnolence [None]

NARRATIVE: CASE EVENT DATE: 20160307
